FAERS Safety Report 17689049 (Version 1)
Quarter: 2020Q2

REPORT INFORMATION
  Report Type: Spontaneous
  Country: CN (occurrence: CN)
  Receive Date: 20200421
  Receipt Date: 20200421
  Transmission Date: 20200714
  Serious: Yes (Other)
  Sender: FDA-Public Use
  Company Number: CN-TOPROL ACQUISITION LLC-2020-TOP-000218

PATIENT
  Age: 70 Year
  Sex: Female

DRUGS (1)
  1. METOPROLOL SUCCINATE. [Suspect]
     Active Substance: METOPROLOL SUCCINATE
     Indication: ARRHYTHMIA
     Dosage: 47.5MG, TAKE ONE TABLET AT ABOUT 8 O^CLOCK EVERY MORNING, JUST USED FOR A SHORT TIME ONE TO TWO WEEK
     Route: 048

REACTIONS (2)
  - Therapeutic product ineffective [Unknown]
  - Heart rate irregular [Unknown]
